FAERS Safety Report 9114865 (Version 1)
Quarter: 2013Q1

REPORT INFORMATION
  Report Type: Spontaneous
  Country: FR (occurrence: FR)
  Receive Date: 20130128
  Receipt Date: 20130128
  Transmission Date: 20140127
  Serious: Yes (Hospitalization)
  Sender: FDA-Public Use
  Company Number: FR-JNJFOC-20130110865

PATIENT
  Age: 17 Year
  Sex: Female

DRUGS (6)
  1. IMODIUM [Suspect]
     Indication: PRODUCT USED FOR UNKNOWN INDICATION
     Route: 048
     Dates: start: 20120417, end: 20120422
  2. KETOPROFEN [Suspect]
     Indication: PROCEDURAL PAIN
     Route: 048
     Dates: start: 20120417, end: 20120422
  3. DAFALGAN [Suspect]
     Indication: PROCEDURAL PAIN
     Route: 048
     Dates: start: 20120417, end: 20120422
  4. COLCHICINE [Suspect]
     Indication: PRODUCT USED FOR UNKNOWN INDICATION
     Route: 048
     Dates: start: 20120417, end: 20120422
  5. COLTRAMYL [Suspect]
     Indication: PRODUCT USED FOR UNKNOWN INDICATION
     Route: 048
     Dates: start: 20120417, end: 20120422
  6. LANSOPRAZOLE [Suspect]
     Indication: PRODUCT USED FOR UNKNOWN INDICATION
     Route: 048
     Dates: start: 20120417, end: 20120422

REACTIONS (2)
  - Pancreatitis [Recovered/Resolved]
  - Pancreatitis acute [None]
